FAERS Safety Report 4723853-6 (Version None)
Quarter: 2005Q3

REPORT INFORMATION
  Report Type: 
  Country: None (occurrence: None)
  Receive Date: 20050721
  Receipt Date: 20050630
  Transmission Date: 20060218
  Serious: No
  Sender: FDA-Public Use
  Company Number: USA050495253

PATIENT
  Age: 9 Year
  Sex: Male
  Weight: 35 kg

DRUGS (1)
  1. STRATTERA [Suspect]
     Indication: ATTENTION DEFICIT/HYPERACTIVITY DISORDER
     Dosage: 60 MG
     Dates: start: 20040520, end: 20050406

REACTIONS (12)
  - ABDOMINAL PAIN [None]
  - ALANINE AMINOTRANSFERASE INCREASED [None]
  - ASPARTATE AMINOTRANSFERASE INCREASED [None]
  - DIARRHOEA [None]
  - EOSINOPHIL COUNT INCREASED [None]
  - HAEMOGLOBIN DECREASED [None]
  - MONOCYTE COUNT INCREASED [None]
  - NAUSEA [None]
  - PLATELET COUNT INCREASED [None]
  - RED BLOOD CELL SEDIMENTATION RATE INCREASED [None]
  - VOMITING [None]
  - WEIGHT DECREASED [None]
